FAERS Safety Report 19481853 (Version 2)
Quarter: 2023Q1

REPORT INFORMATION
  Report Type: Spontaneous
  Country: DE (occurrence: DE)
  Receive Date: 20210701
  Receipt Date: 20230123
  Transmission Date: 20230418
  Serious: Yes (Hospitalization)
  Sender: FDA-Public Use
  Company Number: None

PATIENT
  Age: 71 Year
  Sex: Female

DRUGS (8)
  1. AMITRIPTYLINE [Suspect]
     Active Substance: AMITRIPTYLINE
     Indication: Product used for unknown indication
     Dosage: 25 MG, 1-0-1-0, TABLETTEN
  2. AMIODARONE [Suspect]
     Active Substance: AMIODARONE
     Indication: Product used for unknown indication
     Dosage: 200 MG, 1-1-1-0, TABLETS
  3. CANDESARTAN CILEXETIL AND HYDROCHLOROTHIAZIDE [Suspect]
     Active Substance: CANDESARTAN CILEXETIL\HYDROCHLOROTHIAZIDE
     Indication: Product used for unknown indication
     Dosage: 16, 12.5 MG, 1-0-0-0, TABLET
  4. EDOXABAN [Concomitant]
     Active Substance: EDOXABAN
     Dosage: 60 MG, 1-0-0-0, TABLET
  5. TORSEMIDE [Concomitant]
     Active Substance: TORSEMIDE
     Dosage: 5 MG, 1-0-0-0, TABLET
  6. PANTOPRAZOLE [Concomitant]
     Active Substance: PANTOPRAZOLE
     Dosage: 20 MG, 1-0-0-0, TABLET
  7. BISOPROLOL [Concomitant]
     Active Substance: BISOPROLOL
     Dosage: 5 MG, 1-0-0-0, TABLET
  8. POTASSIUM IODIDE / LEVOTHYROXINE SODIUM [Concomitant]
     Dosage: 125 UG, 1-0-0-0, TABLET

REACTIONS (4)
  - Angina pectoris [Unknown]
  - Vomiting [Unknown]
  - Chest pain [Unknown]
  - Pancreatitis acute [Unknown]
